FAERS Safety Report 13770916 (Version 4)
Quarter: 2017Q3

REPORT INFORMATION
  Report Type: Spontaneous
  Country: US (occurrence: US)
  Receive Date: 20170720
  Receipt Date: 20170814
  Transmission Date: 20171127
  Serious: Yes (Other)
  Sender: FDA-Public Use
  Company Number: US-TEVA-789193ACC

PATIENT
  Age: 31 Year
  Sex: Female
  Weight: 96.25 kg

DRUGS (2)
  1. PRENATAL VITAMINS [Concomitant]
     Active Substance: VITAMINS
  2. PARAGARD T 380A [Suspect]
     Active Substance: COPPER
     Dates: start: 20150831, end: 20170710

REACTIONS (6)
  - Muscle spasms [Unknown]
  - Menorrhagia [Unknown]
  - Dyspareunia [Unknown]
  - Device breakage [Recovered/Resolved]
  - Embedded device [Recovered/Resolved]
  - Sleep disorder [Unknown]

NARRATIVE: CASE EVENT DATE: 20170710
